FAERS Safety Report 13045903 (Version 1)
Quarter: 2016Q4

REPORT INFORMATION
  Report Type: Spontaneous
  Country: US (occurrence: US)
  Receive Date: 20161220
  Receipt Date: 20161220
  Transmission Date: 20170207
  Serious: Yes (Death, Hospitalization)
  Sender: FDA-Public Use
  Company Number: US-TEVA-721223USA

PATIENT
  Age: 10 Year
  Sex: Male

DRUGS (6)
  1. ONDANSETRON [Suspect]
     Active Substance: ONDANSETRON
     Indication: GASTROENTERITIS
     Route: 042
  2. LACTATED RINGERS [Concomitant]
     Active Substance: CALCIUM CHLORIDE\POTASSIUM CHLORIDE\SODIUM CHLORIDE\SODIUM LACTATE
     Dosage: 100 ML PER HOUR
     Route: 065
  3. METRONIDAZOLE. [Interacting]
     Active Substance: METRONIDAZOLE
     Route: 042
  4. SODIUM CHLORIDE. [Concomitant]
     Active Substance: SODIUM CHLORIDE
     Dosage: 1 L
     Route: 065
  5. MORPHINE [Concomitant]
     Active Substance: MORPHINE
     Dosage: 2 MG
     Route: 042
  6. CEFAZOLIN [Concomitant]
     Active Substance: CEFAZOLIN
     Route: 042

REACTIONS (3)
  - Ventricular tachycardia [Fatal]
  - Cardiac arrest [Fatal]
  - Drug interaction [Fatal]
